FAERS Safety Report 23068038 (Version 1)
Quarter: 2023Q4

REPORT INFORMATION
  Report Type: Spontaneous
  Country: DE (occurrence: DE)
  Receive Date: 20231016
  Receipt Date: 20231016
  Transmission Date: 20240110
  Serious: Yes (Hospitalization, Other)
  Sender: FDA-Public Use
  Company Number: None

PATIENT
  Age: 68 Year
  Sex: Male

DRUGS (19)
  1. DOCETAXEL [Suspect]
     Active Substance: DOCETAXEL
     Indication: Oesophageal adenocarcinoma
     Dosage: 50 MG
     Route: 042
     Dates: start: 20230425
  2. DOCETAXEL [Suspect]
     Active Substance: DOCETAXEL
     Dosage: 90 MG
     Route: 042
  3. DOCETAXEL [Suspect]
     Active Substance: DOCETAXEL
     Dosage: 112 MG
     Route: 042
  4. DOCETAXEL [Suspect]
     Active Substance: DOCETAXEL
     Dosage: 114 MG
     Route: 042
  5. OXALIPLATIN [Suspect]
     Active Substance: OXALIPLATIN
     Indication: Oesophageal adenocarcinoma
     Dosage: 85 MG
     Route: 042
     Dates: start: 20230425
  6. OXALIPLATIN [Suspect]
     Active Substance: OXALIPLATIN
     Dosage: 195 MG
     Route: 042
  7. OXALIPLATIN [Suspect]
     Active Substance: OXALIPLATIN
     Dosage: 190 MG
     Route: 042
  8. OXALIPLATIN [Suspect]
     Active Substance: OXALIPLATIN
     Dosage: 155 MG
     Route: 042
  9. PEMBROLIZUMAB [Suspect]
     Active Substance: PEMBROLIZUMAB
     Indication: Oesophageal adenocarcinoma
     Dosage: 200 MG
     Route: 042
     Dates: start: 20230424, end: 20230515
  10. LEUCOVORIN [Suspect]
     Active Substance: LEUCOVORIN\LEUCOVORIN CALCIUM
     Indication: Oesophageal adenocarcinoma
     Dosage: 200 MG
     Route: 042
     Dates: start: 20230425
  11. LEUCOVORIN [Suspect]
     Active Substance: LEUCOVORIN\LEUCOVORIN CALCIUM
     Dosage: 450 MG
     Route: 042
  12. LEUCOVORIN [Suspect]
     Active Substance: LEUCOVORIN\LEUCOVORIN CALCIUM
     Dosage: 350 MG
     Route: 042
  13. TRASTUZUMAB [Suspect]
     Active Substance: TRASTUZUMAB
     Indication: Oesophageal adenocarcinoma
     Dosage: 8 MG
     Route: 042
     Dates: start: 20230424
  14. TRASTUZUMAB [Suspect]
     Active Substance: TRASTUZUMAB
     Dosage: 642 MG
     Route: 042
  15. TRASTUZUMAB [Suspect]
     Active Substance: TRASTUZUMAB
     Dosage: 896 MG
     Route: 042
  16. FLUOROURACIL [Suspect]
     Active Substance: FLUOROURACIL
     Indication: Oesophageal adenocarcinoma
     Dosage: 2600 MG
     Route: 042
     Dates: start: 20230425
  17. FLUOROURACIL [Suspect]
     Active Substance: FLUOROURACIL
     Dosage: 5850 MG
     Route: 042
  18. FLUOROURACIL [Suspect]
     Active Substance: FLUOROURACIL
     Dosage: 5950 MG
     Route: 042
  19. FLUOROURACIL [Suspect]
     Active Substance: FLUOROURACIL
     Dosage: 4700 MG
     Route: 042

REACTIONS (4)
  - Gastric stenosis [Recovered/Resolved]
  - Immune-mediated enterocolitis [Unknown]
  - Diarrhoea [Recovered/Resolved]
  - Product use in unapproved indication [Unknown]

NARRATIVE: CASE EVENT DATE: 20230101
